FAERS Safety Report 7206791-9 (Version None)
Quarter: 2011Q1

REPORT INFORMATION
  Report Type: 
  Country: None (occurrence: None)
  Receive Date: 20110103
  Receipt Date: 20101228
  Transmission Date: 20110831
  Serious: Yes (Other)
  Sender: FDA-Public Use
  Company Number: DE-SANOFI-AVENTIS-2010SA077988

PATIENT
  Age: 67 Year
  Sex: Female
  Weight: 88 kg

DRUGS (9)
  1. PREDNISOLONE [Concomitant]
     Indication: RHEUMATOID ARTHRITIS
     Dosage: DECREASING DOSE OF 20 MG TO 5 MG
     Route: 065
     Dates: start: 20090501, end: 20091201
  2. FOLIC ACID [Concomitant]
     Indication: RHEUMATOID ARTHRITIS
     Dosage: 10 MG WEEKLY
     Route: 065
     Dates: start: 20090601
  3. BISOHEXAL PLUS [Concomitant]
     Dosage: 10 MG / 25 MG DAILY
     Route: 065
  4. PREDNISOLONE [Concomitant]
     Dosage: 5 MG
     Route: 065
     Dates: start: 20091201
  5. ACETYLSALICYLIC ACID SRT [Concomitant]
     Route: 065
  6. ARAVA [Suspect]
     Indication: RHEUMATOID ARTHRITIS
     Route: 048
     Dates: start: 20090817, end: 20100112
  7. RAMIPRIL [Concomitant]
     Route: 065
  8. METHOTREXATE SODIUM [Suspect]
     Indication: RHEUMATOID ARTHRITIS
     Dosage: 15 MG WEEKLY
     Route: 058
     Dates: start: 20090625, end: 20100113
  9. METFORMIN HCL [Concomitant]
     Route: 065

REACTIONS (4)
  - ALANINE AMINOTRANSFERASE INCREASED [None]
  - GAMMA-GLUTAMYLTRANSFERASE INCREASED [None]
  - ASPARTATE AMINOTRANSFERASE INCREASED [None]
  - HEPATIC ENZYME INCREASED [None]
